FAERS Safety Report 4369351-3 (Version None)
Quarter: 2004Q2

REPORT INFORMATION
  Report Type: 
  Country: None (occurrence: None)
  Receive Date: 20040528
  Receipt Date: 20040520
  Transmission Date: 20050107
  Serious: Yes (Hospitalization)
  Sender: FDA-Public Use
  Company Number: US-JNJFOC-20040302267

PATIENT
  Age: 85 Year
  Sex: Female

DRUGS (2)
  1. DURAGESIC [Suspect]
     Indication: PAIN
     Dosage: 25 UG/HR, 1 IN 72 HOUR, TRANSDERMAL : 50 UG/HR, 1 IN , TRANSDERMAL
     Route: 062
     Dates: start: 20030801, end: 20030801
  2. DURAGESIC [Suspect]
     Indication: PAIN
     Dosage: 25 UG/HR, 1 IN 72 HOUR, TRANSDERMAL : 50 UG/HR, 1 IN , TRANSDERMAL
     Route: 062
     Dates: start: 20030801

REACTIONS (2)
  - LOSS OF CONSCIOUSNESS [None]
  - THERAPEUTIC RESPONSE DECREASED [None]
